FAERS Safety Report 7451398-1 (Version None)
Quarter: 2011Q2

REPORT INFORMATION
  Report Type: 
  Country: None (occurrence: None)
  Receive Date: 20110502
  Receipt Date: 20110421
  Transmission Date: 20111010
  Serious: Yes (Life-Threatening, Hospitalization, Disabling)
  Sender: FDA-Public Use
  Company Number: DK-SANOFI-AVENTIS-2011SA017491

PATIENT
  Age: 67 Year
  Sex: Male

DRUGS (3)
  1. XELODA [Suspect]
     Indication: RECTAL CANCER
  2. AVASTIN [Suspect]
     Indication: RECTAL CANCER
  3. OXALIPLATIN [Suspect]
     Indication: RECTAL CANCER

REACTIONS (3)
  - PERITONITIS [None]
  - LARGE INTESTINE PERFORATION [None]
  - RECTAL PERFORATION [None]
